FAERS Safety Report 7348667-2 (Version None)
Quarter: 2011Q1

REPORT INFORMATION
  Report Type: 
  Country: None (occurrence: None)
  Receive Date: 20110314
  Receipt Date: 20110304
  Transmission Date: 20110831
  Serious: No
  Sender: FDA-Public Use
  Company Number: US-BIOGENIDEC-2011BI008647

PATIENT
  Age: 49 Year
  Sex: Female

DRUGS (4)
  1. TYSABRI [Suspect]
     Indication: MULTIPLE SCLEROSIS
     Route: 042
     Dates: start: 20041201, end: 20050201
  2. AVONEX [Concomitant]
     Route: 030
     Dates: start: 20070619, end: 20090601
  3. AVONEX [Concomitant]
     Indication: MULTIPLE SCLEROSIS
     Route: 030
     Dates: start: 20020408, end: 20041201
  4. AVONEX [Concomitant]
     Route: 030
     Dates: start: 20091222, end: 20101101

REACTIONS (1)
  - MULTIPLE SCLEROSIS [None]
